FAERS Safety Report 19895583 (Version 1)
Quarter: 2021Q3

REPORT INFORMATION
  Report Type: Spontaneous
  Country: GB (occurrence: GB)
  Receive Date: 20210929
  Receipt Date: 20210929
  Transmission Date: 20211014
  Serious: Yes (Other)
  Sender: FDA-Public Use
  Company Number: GB-TEVA-2021-GB-1957555

PATIENT
  Age: 4 Year
  Sex: Female
  Weight: 14.96 kg

DRUGS (3)
  1. HYDROCORTISONE. [Suspect]
     Active Substance: HYDROCORTISONE
     Indication: ECZEMA
     Dosage: VARIOUS WEEKLY APPLICATIONS OF A VARIETY OF STEROID CREAMS TWICE DAILY. ONE WEEK ON ONE WEEK OFF
     Route: 061
     Dates: start: 20170801, end: 20210101
  2. EUMOVATE [Suspect]
     Active Substance: CLOBETASONE BUTYRATE
     Indication: ECZEMA
     Dosage: VARIOUS WEEKLY APPLICATIONS OF A VARIETY OF STEROID CREAMS TWICE DAILY. ONE WEEK ON ONE WEEK OFF
     Route: 061
     Dates: start: 20170801, end: 20210101
  3. BETNOVATE [Suspect]
     Active Substance: BETAMETHASONE
     Indication: ECZEMA
     Dosage: VARIOUS WEEKLY APPLICATIONS OF A VARIETY OF STEROID CREAMS TWICE DAILY. ONE WEEK ON ONE WEEK OFF
     Route: 061
     Dates: start: 20170801, end: 20210101

REACTIONS (5)
  - Rash [Recovering/Resolving]
  - Skin haemorrhage [Recovering/Resolving]
  - Skin fissures [Recovering/Resolving]
  - Pruritus [Recovering/Resolving]
  - Steroid withdrawal syndrome [Recovering/Resolving]

NARRATIVE: CASE EVENT DATE: 20200101
